FAERS Safety Report 6651994-5 (Version None)
Quarter: 2010Q1

REPORT INFORMATION
  Report Type: 
  Country: None (occurrence: None)
  Receive Date: 20100325
  Receipt Date: 20100323
  Transmission Date: 20100710
  Serious: Yes (Life-Threatening, Hospitalization)
  Sender: FDA-Public Use
  Company Number: PHHY2010FR17599

PATIENT
  Sex: Male

DRUGS (12)
  1. TAREG [Suspect]
  2. KARDEGIC [Concomitant]
  3. BUMEX [Concomitant]
  4. ALLOPURINOL [Concomitant]
  5. VASTAREL [Concomitant]
  6. NITROGLYCERIN [Concomitant]
  7. FORLAX [Concomitant]
  8. ESOMEPRAZOLE [Concomitant]
  9. ESCITALOPRAM [Concomitant]
  10. DOLIPRANE [Concomitant]
  11. MEBEVERINE [Concomitant]
  12. GAVISCON [Concomitant]

REACTIONS (4)
  - EPISTAXIS [None]
  - IDIOPATHIC THROMBOCYTOPENIC PURPURA [None]
  - REFRACTORY ANAEMIA [None]
  - THROMBOCYTOPENIA [None]
